FAERS Safety Report 25193412 (Version 1)
Quarter: 2025Q2

REPORT INFORMATION
  Report Type: Spontaneous
  Country: TW (occurrence: TW)
  Receive Date: 20250414
  Receipt Date: 20250414
  Transmission Date: 20250717
  Serious: Yes (Other)
  Sender: ALEXION PHARMACEUTICALS
  Company Number: TW-AstraZeneca-CH-00843175A

PATIENT
  Age: 85 Year

DRUGS (2)
  1. TREMELIMUMAB [Suspect]
     Active Substance: TREMELIMUMAB
     Indication: Hepatocellular carcinoma
     Route: 065
  2. IMFINZI [Suspect]
     Active Substance: DURVALUMAB
     Indication: Hepatocellular carcinoma
     Dosage: 1500 MILLIGRAM, Q4W
     Route: 065

REACTIONS (2)
  - Hepatitis [Recovered/Resolved]
  - Femur fracture [Recovered/Resolved]
